FAERS Safety Report 6464117-2 (Version None)
Quarter: 2009Q4

REPORT INFORMATION
  Report Type: 
  Country: None (occurrence: None)
  Receive Date: 20091130
  Receipt Date: 20091130
  Transmission Date: 20100525
  Serious: Yes (Death)
  Sender: FDA-Public Use
  Company Number: None

PATIENT
  Age: 17 Year
  Sex: Female
  Weight: 66.6788 kg

DRUGS (1)
  1. ORTHO EVRA [Suspect]
     Indication: CONTRACEPTION
     Dosage: 1 PATCH Q WEEK TRANSDERMAL
     Route: 062
     Dates: start: 20090623, end: 20090928

REACTIONS (2)
  - PULMONARY EMBOLISM [None]
  - UNRESPONSIVE TO STIMULI [None]
